FAERS Safety Report 8478019-3 (Version None)
Quarter: 2012Q2

REPORT INFORMATION
  Report Type: 
  Country: None (occurrence: None)
  Receive Date: 20120629
  Receipt Date: 20120611
  Transmission Date: 20120825
  Serious: No
  Sender: FDA-Public Use
  Company Number: US-ASTRAZENECA-2011SE19302

PATIENT
  Age: 58 Year
  Sex: Female
  Weight: 87.1 kg

DRUGS (5)
  1. MICROBAN [Concomitant]
     Indication: URINARY TRACT INFECTION
  2. ARIMIDEX [Suspect]
     Indication: BREAST CANCER
     Route: 048
     Dates: start: 20110201
  3. KEFLEX [Concomitant]
     Indication: URINARY TRACT INFECTION
  4. AMOXICILLIN [Concomitant]
     Indication: PAIN
  5. NEXIUM [Suspect]
     Route: 048

REACTIONS (4)
  - DYSPEPSIA [None]
  - URINARY TRACT INFECTION [None]
  - PAIN [None]
  - DRUG DOSE OMISSION [None]
